FAERS Safety Report 6381811-2 (Version None)
Quarter: 2009Q3

REPORT INFORMATION
  Report Type: 
  Country: None (occurrence: None)
  Receive Date: 20090925
  Receipt Date: 20090914
  Transmission Date: 20100115
  Serious: Yes (Hospitalization)
  Sender: FDA-Public Use
  Company Number: 2009010553

PATIENT
  Age: 71 Year
  Sex: Male

DRUGS (4)
  1. TREANDA [Suspect]
     Indication: CHRONIC LYMPHOCYTIC LEUKAEMIA
     Dosage: INFUSION
     Dates: start: 20090311, end: 20090401
  2. PRAVASTATIN SODIUM [Concomitant]
  3. TENORMIN [Concomitant]
  4. NITROGLYCERIN [Concomitant]

REACTIONS (5)
  - ARTHRALGIA [None]
  - PANCYTOPENIA [None]
  - PYREXIA [None]
  - RASH PUSTULAR [None]
  - SKIN EXFOLIATION [None]
